FAERS Safety Report 9844548 (Version 1)
Quarter: 2014Q1

REPORT INFORMATION
  Report Type: Spontaneous
  Country: US (occurrence: None)
  Receive Date: 20140123
  Receipt Date: 20140123
  Transmission Date: 20141002
  Serious: Yes (Other)
  Sender: FDA-Public Use
  Company Number: 2014P1000318

PATIENT
  Sex: Male

DRUGS (1)
  1. PARNATE TABLETS [Suspect]
     Indication: DEPRESSION
     Dates: start: 1980

REACTIONS (2)
  - Weight increased [None]
  - Colon cancer [None]
